FAERS Safety Report 6263973-0 (Version None)
Quarter: 2009Q3

REPORT INFORMATION
  Report Type: 
  Country: None (occurrence: None)
  Receive Date: 20090710
  Receipt Date: 20090706
  Transmission Date: 20100115
  Serious: Yes (Other)
  Sender: FDA-Public Use
  Company Number: US-ASTRAZENECA-2008UW27603

PATIENT
  Age: 15186 Day
  Sex: Female
  Weight: 90.7 kg

DRUGS (3)
  1. SEROQUEL [Suspect]
     Indication: INSOMNIA
     Route: 048
     Dates: start: 20040301, end: 20090108
  2. SEROQUEL [Suspect]
     Indication: DEPRESSION
     Route: 048
     Dates: start: 20040301, end: 20090108
  3. PAXIL CR [Concomitant]
     Dates: start: 20010101

REACTIONS (2)
  - TYPE 2 DIABETES MELLITUS [None]
  - UTERINE DISORDER [None]
